FAERS Safety Report 6039079-2 (Version None)
Quarter: 2009Q1

REPORT INFORMATION
  Report Type: 
  Country: None (occurrence: None)
  Receive Date: 20090115
  Receipt Date: 20090107
  Transmission Date: 20090719
  Serious: Yes (Other)
  Sender: FDA-Public Use
  Company Number: US-PFIZER INC-2009152957

PATIENT
  Sex: Female
  Weight: 81.646 kg

DRUGS (2)
  1. XALATAN [Suspect]
     Indication: GLAUCOMA
  2. ALL OTHER THERAPEUTIC PRODUCTS [Concomitant]

REACTIONS (8)
  - BODY HEIGHT DECREASED [None]
  - CATARACT [None]
  - EYE PAIN [None]
  - FOREIGN BODY SENSATION IN EYES [None]
  - MACULAR DEGENERATION [None]
  - OCULAR DISCOMFORT [None]
  - TREMOR [None]
  - VISUAL ACUITY REDUCED [None]
